FAERS Safety Report 23970995 (Version 1)
Quarter: 2024Q2

REPORT INFORMATION
  Report Type: Spontaneous
  Country: IS (occurrence: IS)
  Receive Date: 20240613
  Receipt Date: 20240613
  Transmission Date: 20240716
  Serious: Yes (Other)
  Sender: FDA-Public Use
  Company Number: None

PATIENT

DRUGS (5)
  1. FLUTICASONE FUROATE\VILANTEROL TRIFENATATE [Suspect]
     Active Substance: FLUTICASONE FUROATE\VILANTEROL TRIFENATATE
     Indication: Cough
     Dosage: 1 DF, QD (1 INHALE PER DAY)
     Route: 055
     Dates: start: 20240313
  2. ACTIVELLE [Concomitant]
     Active Substance: ESTRADIOL\NORETHINDRONE ACETATE
     Indication: Product used for unknown indication
     Dosage: UNK (1 X 1)
     Route: 065
     Dates: start: 2017
  3. URSODIOL [Concomitant]
     Active Substance: URSODIOL
     Indication: Product used for unknown indication
     Dosage: 5 DF (3 CAPSULES IN THE MORNING - 2 CAPSULES AT EVENING)
     Route: 065
     Dates: start: 2018
  4. RABEPRAZOLE ACTAVIS [Concomitant]
     Indication: Product used for unknown indication
     Dosage: 20 MG (1 X 2)
     Route: 065
     Dates: start: 2022
  5. METOPROLOL TARTRATE [Concomitant]
     Active Substance: METOPROLOL TARTRATE
     Indication: Product used for unknown indication
     Dosage: 23.5 MG (1 X 2)
     Route: 065
     Dates: start: 2020

REACTIONS (3)
  - Arrhythmia [Recovering/Resolving]
  - Arthralgia [Recovering/Resolving]
  - Dizziness [Recovering/Resolving]

NARRATIVE: CASE EVENT DATE: 20240315
